FAERS Safety Report 10982082 (Version 2)
Quarter: 2015Q2

REPORT INFORMATION
  Report Type: Spontaneous
  Country: US (occurrence: US)
  Receive Date: 20150403
  Receipt Date: 20150430
  Transmission Date: 20150821
  Serious: Yes (Hospitalization)
  Sender: FDA-Public Use
  Company Number: US-009507513-1504USA001386

PATIENT

DRUGS (2)
  1. HEPARIN [Suspect]
     Active Substance: HEPARIN SODIUM
     Dosage: UNK
  2. INTEGRILIN [Suspect]
     Active Substance: EPTIFIBATIDE
     Dosage: UNK
     Route: 042

REACTIONS (2)
  - Haemoglobin decreased [Unknown]
  - Haemorrhage [Unknown]
